FAERS Safety Report 5939394-4 (Version None)
Quarter: 2008Q4

REPORT INFORMATION
  Report Type: 
  Country: None (occurrence: None)
  Receive Date: 20081103
  Receipt Date: 20081022
  Transmission Date: 20090506
  Serious: Yes (Other)
  Sender: FDA-Public Use
  Company Number: AU-PFIZER INC-2008090164

PATIENT
  Sex: Male

DRUGS (1)
  1. CHAMPIX [Suspect]

REACTIONS (4)
  - AFFECT LABILITY [None]
  - AGGRESSION [None]
  - MEMORY IMPAIRMENT [None]
  - MOOD ALTERED [None]
